FAERS Safety Report 7035773-5 (Version None)
Quarter: 2010Q4

REPORT INFORMATION
  Report Type: 
  Country: None (occurrence: None)
  Receive Date: 20101008
  Receipt Date: 20101005
  Transmission Date: 20110411
  Serious: Yes (Death, Hospitalization)
  Sender: FDA-Public Use
  Company Number: US-ABBOTT-10P-163-0675823-00

PATIENT
  Sex: Male
  Weight: 74.91 kg

DRUGS (2)
  1. ZEMPLAR [Suspect]
     Indication: RENAL DISORDER
  2. UNKOWN LONG LIST [Concomitant]
     Indication: PRODUCT USED FOR UNKNOWN INDICATION

REACTIONS (3)
  - CHRONIC OBSTRUCTIVE PULMONARY DISEASE [None]
  - FALL [None]
  - RIB FRACTURE [None]
